FAERS Safety Report 19189837 (Version 2)
Quarter: 2021Q2

REPORT INFORMATION
  Report Type: Spontaneous
  Country: FI (occurrence: FI)
  Receive Date: 20210428
  Receipt Date: 20210506
  Transmission Date: 20210717
  Serious: Yes (Death)
  Sender: FDA-Public Use
  Company Number: FI-EMD SERONO-9233775

PATIENT
  Age: 43 Year
  Sex: Male
  Weight: 68 kg

DRUGS (6)
  1. MODAFINIL. [Suspect]
     Active Substance: MODAFINIL
     Indication: FATIGUE
     Dates: start: 202012, end: 202012
  2. MAVENCLAD [Suspect]
     Active Substance: CLADRIBINE
     Indication: MULTIPLE SCLEROSIS
     Dosage: YEAR ONE MONTH ONE THERAPY: TWO TABLETS ON DAY 1 AND ONE TABLET ON DAYS 2 TO 5
     Dates: start: 20180912
  3. MAVENCLAD [Suspect]
     Active Substance: CLADRIBINE
     Dosage: YEAR TWO MONTH TWO THERAPY: TWO TABLETS ON DAY 1 AND ONE TABLET ON DAYS 2 TO 5
     Dates: start: 2019
  4. MAVENCLAD [Suspect]
     Active Substance: CLADRIBINE
     Dosage: YEAR TWO MONTH ONE THERAPY: TWO TABLETS ON DAY 1 AND ONE TABLET ON DAYS 2 TO 5
     Dates: start: 20190930
  5. VITAMIN D                          /00107901/ [Concomitant]
     Active Substance: ERGOCALCIFEROL
     Indication: PRODUCT USED FOR UNKNOWN INDICATION
  6. MAVENCLAD [Suspect]
     Active Substance: CLADRIBINE
     Dosage: YEAR ONE MONTH TWO THERAPY: TWO TABLETS ON DAY 1 AND ONE TABLET ON DAYS 2 TO 5

REACTIONS (3)
  - Fatigue [Unknown]
  - Cardiac arrest [Fatal]
  - Palpitations [Unknown]

NARRATIVE: CASE EVENT DATE: 202012
